FAERS Safety Report 5261580-X (Version None)
Quarter: 2007Q1

REPORT INFORMATION
  Report Type: 
  Country: None (occurrence: None)
  Receive Date: 20061218
  Receipt Date: 20060808
  Transmission Date: 20070707
  Serious: No
  Sender: FDA-Public Use
  Company Number: US200608001896

PATIENT
  Age: 63 Year
  Sex: Male

DRUGS (1)
  1. CIALIS [Suspect]
     Indication: RADICAL PROSTATECTOMY
     Dosage: SEE IMAGE
     Dates: start: 20060201

REACTIONS (2)
  - DYSPEPSIA [None]
  - THERAPEUTIC RESPONSE DECREASED [None]
